FAERS Safety Report 12714102 (Version 1)
Quarter: 2016Q3

REPORT INFORMATION
  Report Type: Spontaneous
  Country: IE (occurrence: IE)
  Receive Date: 20160905
  Receipt Date: 20160905
  Transmission Date: 20161109
  Serious: Yes (Hospitalization)
  Sender: FDA-Public Use
  Company Number: IE-INGENUS PHARMACEUTICALS, LLC-ING201608-000037

PATIENT
  Age: 46 Year
  Sex: Male

DRUGS (6)
  1. AZATHIOPRINE. [Concomitant]
     Active Substance: AZATHIOPRINE
  2. RANITIDINE. [Concomitant]
     Active Substance: RANITIDINE
  3. PREDNISOLONE. [Concomitant]
     Active Substance: PREDNISOLONE
  4. TEMAZEPAM. [Concomitant]
     Active Substance: TEMAZEPAM
  5. NEORAL [Suspect]
     Active Substance: CYCLOSPORINE
  6. PROBENCID AND COLCHICINE [Suspect]
     Active Substance: COLCHICINE\PROBENECID

REACTIONS (8)
  - Drug interaction [Unknown]
  - Duodenitis [Unknown]
  - Oesophagitis [Unknown]
  - Purpura [Unknown]
  - Rash erythematous [Unknown]
  - Toxicity to various agents [Unknown]
  - Neuromyopathy [Unknown]
  - Diverticulum [Unknown]
